FAERS Safety Report 13921502 (Version 2)
Quarter: 2017Q3

REPORT INFORMATION
  Report Type: Spontaneous
  Country: JP (occurrence: JP)
  Receive Date: 20170830
  Receipt Date: 20170905
  Transmission Date: 20171127
  Serious: No
  Sender: FDA-Public Use
  Company Number: JP-JNJFOC-20170825619

PATIENT
  Age: 55 Year
  Sex: Female

DRUGS (2)
  1. INVEGA [Suspect]
     Active Substance: PALIPERIDONE
     Indication: SCHIZOPHRENIA
     Dosage: VIA ORAL ROUTE
     Route: 050
  2. INVEGA [Suspect]
     Active Substance: PALIPERIDONE
     Indication: SCHIZOPHRENIA
     Dosage: OTHER ROUTE: RECEIVED ALL THE MEDICATION THROUGH A TUBE INSERTED INTO THE NOSE
     Route: 050

REACTIONS (2)
  - Product use issue [Unknown]
  - Off label use [Unknown]
